FAERS Safety Report 7338929-7 (Version None)
Quarter: 2011Q1

REPORT INFORMATION
  Report Type: 
  Country: None (occurrence: None)
  Receive Date: 20110304
  Receipt Date: 20110304
  Transmission Date: 20110831
  Serious: Yes (Hospitalization)
  Sender: FDA-Public Use
  Company Number: None

PATIENT
  Sex: Female
  Weight: 90 kg

DRUGS (8)
  1. TAXOTERE [Suspect]
     Dosage: 148 MG
     Dates: end: 20110106
  2. HERCEPTIN [Suspect]
     Dosage: 184 MG
     Dates: end: 20110120
  3. PREDNISONE [Concomitant]
  4. DURAGESIC-100 [Concomitant]
  5. CARBOPLATIN [Suspect]
     Dosage: 900 MG
     Dates: end: 20110106
  6. MOTRIN [Concomitant]
  7. LORTAB [Concomitant]
  8. NEXIUM [Concomitant]

REACTIONS (2)
  - CHEST PAIN [None]
  - ARTHRALGIA [None]
